FAERS Safety Report 6408253-5 (Version None)
Quarter: 2009Q4

REPORT INFORMATION
  Report Type: 
  Country: None (occurrence: None)
  Receive Date: 20091021
  Receipt Date: 20091008
  Transmission Date: 20100525
  Serious: Yes (Other)
  Sender: FDA-Public Use
  Company Number: US-PFIZER INC-2009251379

PATIENT
  Sex: Female
  Weight: 52.608 kg

DRUGS (2)
  1. ZOLOFT [Suspect]
     Indication: PANIC ATTACK
     Dosage: UNK
     Route: 048
     Dates: start: 20090630, end: 20090730
  2. VICODIN ES [Concomitant]

REACTIONS (4)
  - DYSGRAPHIA [None]
  - NAUSEA [None]
  - PANIC ATTACK [None]
  - TREMOR [None]
